FAERS Safety Report 5636551-1 (Version None)
Quarter: 2008Q1

REPORT INFORMATION
  Report Type: 
  Country: None (occurrence: None)
  Receive Date: 20080225
  Receipt Date: 20080131
  Transmission Date: 20080703
  Serious: No
  Sender: FDA-Public Use
  Company Number: US-BAYER-200812396NA

PATIENT
  Age: 63 Year
  Sex: Male

DRUGS (2)
  1. LEVITRA [Suspect]
     Indication: ERECTILE DYSFUNCTION
     Dosage: TOTAL DAILY DOSE: 10 MG  UNIT DOSE: 10 MG
     Route: 048
     Dates: start: 20080114, end: 20080114
  2. NIACIN [Concomitant]

REACTIONS (1)
  - ERECTILE DYSFUNCTION [None]
